FAERS Safety Report 14909368 (Version 1)
Quarter: 2018Q2

REPORT INFORMATION
  Report Type: Spontaneous
  Country: GB (occurrence: GB)
  Receive Date: 20180517
  Receipt Date: 20180517
  Transmission Date: 20180711
  Serious: Yes (Other)
  Sender: FDA-Public Use
  Company Number: GB-PURDUE PHARMA-GBR-2018-0055961

PATIENT
  Age: 73 Year
  Sex: Female
  Weight: 62.2 kg

DRUGS (5)
  1. AMOXICILLIN. [Concomitant]
     Active Substance: AMOXICILLIN
     Route: 065
     Dates: start: 20180122
  2. BUTRANS [Suspect]
     Active Substance: BUPRENORPHINE
     Indication: PRODUCT USED FOR UNKNOWN INDICATION
     Route: 062
     Dates: start: 20171130, end: 20180108
  3. INFLUENZA VACCINE INACTIVATED [Concomitant]
     Active Substance: INFLUENZA VIRUS VACCINE
     Dosage: 0.5 ML, UNK
     Route: 065
     Dates: start: 20171021
  4. BUSIETE [Concomitant]
     Dosage: 1 DF, DAILY
     Route: 065
     Dates: start: 20180108
  5. ADCAL-D3 [Concomitant]
     Active Substance: CALCIUM CARBONATE\CHOLECALCIFEROL
     Dosage: 4 DF, DAILY 750MG/200UNIT
     Route: 065
     Dates: start: 20171219

REACTIONS (5)
  - Skin reaction [Recovering/Resolving]
  - Pain of skin [Unknown]
  - Erythema [Unknown]
  - Blister [Unknown]
  - Pruritus [Unknown]

NARRATIVE: CASE EVENT DATE: 20171130
